FAERS Safety Report 7219879-3 (Version None)
Quarter: 2011Q1

REPORT INFORMATION
  Report Type: 
  Country: None (occurrence: None)
  Receive Date: 20110111
  Receipt Date: 20110103
  Transmission Date: 20110831
  Serious: Yes (Hospitalization)
  Sender: FDA-Public Use
  Company Number: FR-ASTRAZENECA-2011SE00828

PATIENT
  Sex: Female

DRUGS (4)
  1. CRESTOR [Suspect]
     Indication: HYPERCHOLESTEROLAEMIA
     Dosage: UNKNOWN DOSE DAILY
     Route: 048
     Dates: end: 20100427
  2. HYPERIUM [Suspect]
     Indication: HYPERTENSION
     Route: 048
  3. PREVISCAN [Suspect]
     Indication: ANTICOAGULANT THERAPY
     Dosage: UNKNOWN DOSE DAILY
     Route: 048
     Dates: end: 20100427
  4. LASILIX [Suspect]
     Indication: HYPERTENSION
     Route: 048

REACTIONS (2)
  - INTRA-ABDOMINAL HAEMATOMA [None]
  - HAEMATEMESIS [None]
